FAERS Safety Report 7932651-1 (Version None)
Quarter: 2011Q4

REPORT INFORMATION
  Report Type: 
  Country: None (occurrence: None)
  Receive Date: 20111122
  Receipt Date: 20111114
  Transmission Date: 20120403
  Serious: Yes (Hospitalization, Other)
  Sender: FDA-Public Use
  Company Number: US-BRISTOL-MYERS SQUIBB COMPANY-16230286

PATIENT
  Age: 69 Year
  Sex: Female
  Weight: 56 kg

DRUGS (6)
  1. HYDROXYZINE HCL [Concomitant]
     Dates: start: 20111108
  2. IPILIMUMAB [Suspect]
     Indication: METASTATIC MALIGNANT MELANOMA
     Dosage: FREQUNCY:Q3M.
     Route: 042
     Dates: start: 20111024
  3. ATIVAN [Concomitant]
     Dates: start: 20110926
  4. PRILOSEC [Concomitant]
     Dates: start: 20111031
  5. BEVACIZUMAB [Suspect]
     Indication: METASTATIC MALIGNANT MELANOMA
     Route: 042
     Dates: start: 20111024
  6. MULTI-VITAMINS [Concomitant]
     Dates: start: 20111031

REACTIONS (3)
  - NEOPLASM MALIGNANT [None]
  - DYSPNOEA [None]
  - NEOPLASM PROGRESSION [None]
